FAERS Safety Report 5802072-6 (Version None)
Quarter: 2008Q3

REPORT INFORMATION
  Report Type: 
  Country: None (occurrence: None)
  Receive Date: 20080707
  Receipt Date: 20080624
  Transmission Date: 20090109
  Serious: Yes (Hospitalization)
  Sender: FDA-Public Use
  Company Number: PHHY2008JP11140

PATIENT
  Sex: Male

DRUGS (8)
  1. LAMISIL [Suspect]
     Dosage: 125 MG /DAY
     Route: 048
     Dates: start: 20080305, end: 20080516
  2. METLIGINE [Concomitant]
     Dosage: 1 MG
     Route: 048
  3. ACTOS [Concomitant]
     Dosage: 15 MG
     Route: 048
  4. MERISLON [Concomitant]
     Route: 048
  5. METFORMIN HCL [Concomitant]
     Route: 048
  6. BASEN [Concomitant]
     Dosage: 0.9 MG
     Route: 048
  7. NOVOLIN R [Concomitant]
     Dosage: 26 DF
     Route: 042
  8. BOIOGITO [Concomitant]
     Dosage: 7.5 G
     Route: 048

REACTIONS (5)
  - ASTHENIA [None]
  - BLOOD CREATINE PHOSPHOKINASE INCREASED [None]
  - BLOOD LACTATE DEHYDROGENASE INCREASED [None]
  - MYALGIA [None]
  - RHABDOMYOLYSIS [None]
